FAERS Safety Report 6423198-2 (Version None)
Quarter: 2009Q4

REPORT INFORMATION
  Report Type: 
  Country: None (occurrence: None)
  Receive Date: 20091102
  Receipt Date: 20091005
  Transmission Date: 20100525
  Serious: No
  Sender: FDA-Public Use
  Company Number: US-BAYER-200934960NA

PATIENT
  Age: 58 Year
  Sex: Female

DRUGS (2)
  1. CLIMARA [Suspect]
     Indication: HORMONE REPLACEMENT THERAPY
     Route: 062
  2. HYDROCORTISONE [Concomitant]
     Indication: ADRENAL INSUFFICIENCY

REACTIONS (1)
  - HOT FLUSH [None]
